FAERS Safety Report 18432475 (Version 1)
Quarter: 2020Q4

REPORT INFORMATION
  Report Type: Spontaneous
  Country: None (occurrence: US)
  Receive Date: 20201027
  Receipt Date: 20201027
  Transmission Date: 20210114
  Serious: Yes (Other)
  Sender: FDA-Public Use
  Company Number: US-SIGA TECHNOLOGIES, INC.-2093157

PATIENT
  Age: 19 Year
  Sex: Male

DRUGS (4)
  1. TPOXX [Suspect]
     Active Substance: TECOVIRIMAT
     Indication: ORTHOPOXVIRUS TEST POSITIVE
     Route: 048
     Dates: start: 201601, end: 201603
  2. CYTARABINE. [Concomitant]
     Active Substance: CYTARABINE
  3. VACCINIA IMMUNE GLOBULIN INTRAVENOUS (VIGIV) [Concomitant]
  4. DAUNORUBICIN HYDROCHLORIDE. [Concomitant]
     Active Substance: DAUNORUBICIN HYDROCHLORIDE

REACTIONS (1)
  - Vaccination site injury [Recovered/Resolved]

NARRATIVE: CASE EVENT DATE: 201601
